FAERS Safety Report 16541178 (Version 1)
Quarter: 2019Q3

REPORT INFORMATION
  Report Type: Spontaneous
  Country: US (occurrence: US)
  Receive Date: 20190708
  Receipt Date: 20190708
  Transmission Date: 20191004
  Serious: Yes (Other)
  Sender: FDA-Public Use
  Company Number: US-EMD SERONO-9101520

PATIENT
  Age: 31 Year
  Sex: Female

DRUGS (3)
  1. MENOTROPHIN [Suspect]
     Active Substance: MENOTROPINS
     Indication: ASSISTED FERTILISATION
  2. CETROTIDE [Suspect]
     Active Substance: CETRORELIX ACETATE
     Indication: ASSISTED FERTILISATION
  3. GONAL-F [Suspect]
     Active Substance: FOLLITROPIN
     Indication: ASSISTED FERTILISATION

REACTIONS (5)
  - Ovarian hyperstimulation syndrome [Unknown]
  - Injection site erythema [Unknown]
  - Treatment failure [Unknown]
  - Injection site swelling [Unknown]
  - Injection site pain [Unknown]
